FAERS Safety Report 7001043-4 (Version None)
Quarter: 2010Q3

REPORT INFORMATION
  Report Type: 
  Country: None (occurrence: None)
  Receive Date: 20100920
  Receipt Date: 20080630
  Transmission Date: 20110219
  Serious: Yes (Other)
  Sender: FDA-Public Use
  Company Number: US-ASTRAZENECA-2007UW10994

PATIENT
  Age: 23074 Day
  Sex: Female

DRUGS (3)
  1. SEROQUEL [Suspect]
     Indication: SLEEP DISORDER
     Route: 048
     Dates: start: 20000824, end: 20050101
  2. BACLOFEN [Concomitant]
     Dates: start: 20011230
  3. HYDROCODONE BITARTRATE AND ACETAMINOPHEN [Concomitant]
     Dosage: STRENGTH: 5-500. DOSE- ONE TABLET
     Dates: start: 20021222

REACTIONS (2)
  - DIABETIC KETOACIDOSIS [None]
  - PANCREATITIS ACUTE [None]
